FAERS Safety Report 12219791 (Version 1)
Quarter: 2016Q1

REPORT INFORMATION
  Report Type: Report from Study
  Country: US (occurrence: US)
  Receive Date: 20160330
  Receipt Date: 20160330
  Transmission Date: 20160526
  Serious: Yes (Hospitalization)
  Sender: FDA-Public Use
  Company Number: PHEH2015US009881

PATIENT
  Sex: Female

DRUGS (2)
  1. AFINITOR [Suspect]
     Active Substance: EVEROLIMUS
     Indication: CONNECTIVE TISSUE NEOPLASM
     Dosage: 10 MG, QD
     Route: 048
  2. AFINITOR [Suspect]
     Active Substance: EVEROLIMUS
     Indication: OVARIAN CANCER

REACTIONS (5)
  - Gastric ulcer haemorrhage [Unknown]
  - Dehydration [Unknown]
  - Small intestinal haemorrhage [Unknown]
  - Renal haemorrhage [Unknown]
  - Off label use [Unknown]
